FAERS Safety Report 14705222 (Version 2)
Quarter: 2018Q4

REPORT INFORMATION
  Report Type: Spontaneous
  Country: RU (occurrence: RU)
  Receive Date: 20180402
  Receipt Date: 20181017
  Transmission Date: 20190204
  Serious: Yes (Other)
  Sender: FDA-Public Use
  Company Number: RU-ASTELLAS-2018US015335

PATIENT
  Age: 4 Year
  Sex: Male

DRUGS (7)
  1. TACROLIMUS. [Suspect]
     Active Substance: TACROLIMUS
     Indication: PROPHYLAXIS AGAINST GRAFT VERSUS HOST DISEASE
     Dosage: UNK UNK, UNKNOWN FREQ. (FROM D-1)
     Route: 042
     Dates: end: 201510
  2. CYCLOPHOSPHAMIDE. [Suspect]
     Active Substance: CYCLOPHOSPHAMIDE
     Indication: CHEMOTHERAPY
     Route: 065
     Dates: start: 201605
  3. TREOSULFAN [Concomitant]
     Active Substance: TREOSULFAN
     Indication: LEUKAEMIA MONOCYTIC
     Dosage: 14000 MG/M2, UNKNOWN FREQ. (DAYS-4,-3, -2)
     Route: 065
  4. ATG                                /02082702/ [Concomitant]
     Active Substance: EQUINE THYMOCYTE IMMUNE GLOBULIN
     Indication: PROPHYLAXIS AGAINST GRAFT VERSUS HOST DISEASE
     Dosage: 10 MG/KG, UNKNOWN FREQ. (ON DAYS-5,-3,-1, +1)
     Route: 065
  5. CYCLOPHOSPHAMIDE. [Suspect]
     Active Substance: CYCLOPHOSPHAMIDE
     Indication: BONE MARROW CONDITIONING REGIMEN
     Dosage: 1500 MG/M2, UNKNOWN FREQ. (ON DAY-3)
     Route: 065
     Dates: start: 201605
  6. MYCOPHENOLATE MOFETIL. [Concomitant]
     Active Substance: MYCOPHENOLATE MOFETIL
     Indication: PROPHYLAXIS AGAINST GRAFT VERSUS HOST DISEASE
     Dosage: 25 MG/KG, UNKNOWN FREQ. (FROM D 9)
     Route: 065
  7. MELPHALAN. [Concomitant]
     Active Substance: MELPHALAN
     Indication: LEUKAEMIA MONOCYTIC
     Dosage: 100 MG/M2, UNKNOWN FREQ. (DAY-5)
     Route: 065

REACTIONS (6)
  - Graft versus host disease in skin [Recovered/Resolved]
  - Toxicity to various agents [Recovered/Resolved]
  - Seizure [Unknown]
  - Off label use [Unknown]
  - Eosinophilia [Recovered/Resolved]
  - Hyponatraemia [Unknown]

NARRATIVE: CASE EVENT DATE: 201510
